FAERS Safety Report 7709694-6 (Version None)
Quarter: 2011Q3

REPORT INFORMATION
  Report Type: 
  Country: None (occurrence: None)
  Receive Date: 20110825
  Receipt Date: 20081031
  Transmission Date: 20111222
  Serious: Yes (Life-Threatening, Hospitalization)
  Sender: FDA-Public Use
  Company Number: DE-GLAXOSMITHKLINE-B0544842A

PATIENT
  Sex: Female
  Weight: 63 kg

DRUGS (6)
  1. TOPOTECAN [Suspect]
     Indication: NEOPLASM MALIGNANT
     Dosage: 1.2MG CYCLIC
     Route: 042
     Dates: start: 20081028
  2. DEXAMETHASONE [Concomitant]
     Indication: VOMITING
     Dosage: 8MG PER DAY
     Route: 042
     Dates: start: 20081028, end: 20081030
  3. CLEMASTIN [Concomitant]
     Indication: ANTIALLERGIC THERAPY
     Dosage: 2MG PER DAY
     Route: 042
     Dates: start: 20081028, end: 20081030
  4. PROPYLTHIOURACIL [Concomitant]
     Indication: HYPERTHYROIDISM
     Dosage: 50MG PER DAY
     Route: 048
     Dates: start: 20080829
  5. CARBOPLATIN [Suspect]
     Indication: NEOPLASM MALIGNANT
     Dosage: 606.7MG CYCLIC
     Route: 042
     Dates: start: 20081030, end: 20081030
  6. ONDANSETRON [Concomitant]
     Indication: VOMITING
     Dosage: 4MG PER DAY
     Route: 042
     Dates: start: 20081028, end: 20081030

REACTIONS (8)
  - PYREXIA [None]
  - TACHYCARDIA [None]
  - DYSPNOEA [None]
  - ANAPHYLACTIC REACTION [None]
  - OXYGEN SATURATION DECREASED [None]
  - RASH [None]
  - HYPERSENSITIVITY [None]
  - FLUSHING [None]
